FAERS Safety Report 4611785-3 (Version None)
Quarter: 2005Q1

REPORT INFORMATION
  Report Type: 
  Country: None (occurrence: None)
  Receive Date: 20050308
  Receipt Date: 20041202
  Transmission Date: 20050727
  Serious: Yes (Other)
  Sender: FDA-Public Use
  Company Number: 2004UW24771

PATIENT
  Age: 62 Year
  Sex: Female
  Weight: 27.7601 kg

DRUGS (1)
  1. CRESTOR [Suspect]
     Indication: HYPERCHOLESTEROLAEMIA

REACTIONS (3)
  - ARTERIAL OCCLUSIVE DISEASE [None]
  - MUSCULAR WEAKNESS [None]
  - MYALGIA [None]
